FAERS Safety Report 21613947 (Version 1)
Quarter: 2022Q4

REPORT INFORMATION
  Report Type: Report from Study
  Country: US (occurrence: US)
  Receive Date: 20221118
  Receipt Date: 20221118
  Transmission Date: 20230113
  Serious: No
  Sender: FDA-Public Use
  Company Number: US-ABBVIE-22K-163-4429932-00

PATIENT
  Sex: Female

DRUGS (3)
  1. RINVOQ [Suspect]
     Active Substance: UPADACITINIB
     Indication: Rheumatoid arthritis
     Dosage: DISCONTINUED IN 2022, STRENGTH-15 MG
     Route: 048
     Dates: start: 20220305
  2. RINVOQ [Suspect]
     Active Substance: UPADACITINIB
     Indication: Rheumatoid arthritis
     Dosage: STARTED IN 2022, STRENGTH-15 MG
     Route: 048
     Dates: end: 202207
  3. ORENCIA [Concomitant]
     Active Substance: ABATACEPT
     Indication: Arthralgia

REACTIONS (6)
  - General physical health deterioration [Unknown]
  - Hot flush [Unknown]
  - Tendonitis [Unknown]
  - Exostosis [Unknown]
  - Pain [Unknown]
  - Therapeutic product effect incomplete [Unknown]

NARRATIVE: CASE EVENT DATE: 20220101
